FAERS Safety Report 26214070 (Version 1)
Quarter: 2025Q4

REPORT INFORMATION
  Report Type: Spontaneous
  Country: US (occurrence: US)
  Receive Date: 20251230
  Receipt Date: 20251230
  Transmission Date: 20260117
  Serious: No
  Sender: FRESENIUS KABI
  Company Number: US-FreseniusKabi-FK202517642

PATIENT

DRUGS (4)
  1. SMOFLIPID [Suspect]
     Active Substance: FISH OIL\MEDIUM-CHAIN TRIGLYCERIDES\OLIVE OIL\SOYBEAN OIL
     Indication: Product used for unknown indication
     Dosage: FOA: INJECTABLE EMULSION
  2. INTRALIPID [Suspect]
     Active Substance: EGG PHOSPHOLIPIDS\GLYCERIN\SOYBEAN OIL
     Indication: Product used for unknown indication
     Dosage: FOA: INJECTABLE EMULSION
  3. OMEGAVEN [Suspect]
     Active Substance: FISH OIL
     Indication: Product used for unknown indication
     Dosage: FOA: INJECTABLE EMULSION
  4. CLINOLIPID [Suspect]
     Active Substance: OLIVE OIL\SOYBEAN OIL
     Indication: Product used for unknown indication

REACTIONS (1)
  - Rash pruritic [Unknown]
